FAERS Safety Report 10261761 (Version 3)
Quarter: 2015Q2

REPORT INFORMATION
  Report Type: Report from Study
  Country: MX (occurrence: MX)
  Receive Date: 20140626
  Receipt Date: 20150626
  Transmission Date: 20150821
  Serious: Yes (Hospitalization)
  Sender: FDA-Public Use
  Company Number: MX-UCBSA-2014002253

PATIENT
  Age: 3 Year
  Sex: Female
  Weight: 14.5 kg

DRUGS (4)
  1. CEFTRIAXONE. [Concomitant]
     Active Substance: CEFTRIAXONE
     Indication: UPPER RESPIRATORY TRACT INFECTION
     Dosage: 500 MG, ONCE DAILY (QD)
     Route: 030
     Dates: start: 20140403, end: 20140407
  2. NIMESULIDE [Concomitant]
     Active Substance: NIMESULIDE
     Indication: UPPER RESPIRATORY TRACT INFECTION
     Dosage: 4 ML, 3X/DAY (TID)
     Dates: start: 20140403, end: 20140406
  3. LACOSAMIDE EP [Suspect]
     Active Substance: LACOSAMIDE
     Indication: EPILEPSY
     Dosage: 6.5 ML, 2X/DAY (BID)
     Route: 048
     Dates: start: 20120608
  4. CLARITIN [Concomitant]
     Active Substance: LORATADINE
     Dosage: 4 ML, 3X/DAY (TID)

REACTIONS (1)
  - Epilepsy [Recovered/Resolved]

NARRATIVE: CASE EVENT DATE: 20140404
